FAERS Safety Report 11103572 (Version 1)
Quarter: 2015Q2

REPORT INFORMATION
  Report Type: Spontaneous
  Country: GB (occurrence: None)
  Receive Date: 20150507
  Receipt Date: 20150507
  Transmission Date: 20150821
  Serious: Yes (Life-Threatening)
  Sender: FDA-Public Use
  Company Number: ABR_02195_2015

PATIENT
  Age: 46 Year
  Sex: Male

DRUGS (2)
  1. ASPIRIN. [Concomitant]
     Active Substance: ASPIRIN
  2. GLYCERYL TRINITRATE (GLYCERYL TRINITRATE) [Suspect]
     Active Substance: NITROGLYCERIN
     Indication: CHEST PAIN
     Route: 060
     Dates: start: 201502, end: 201502

REACTIONS (6)
  - Pallor [None]
  - Tonic convulsion [None]
  - Myocardial ischaemia [None]
  - Hyperhidrosis [None]
  - Eye movement disorder [None]
  - Cardiac output decreased [None]

NARRATIVE: CASE EVENT DATE: 20150210
